FAERS Safety Report 5596191-X (Version None)
Quarter: 2007Q4

REPORT INFORMATION
  Report Type: 
  Country: None (occurrence: None)
  Receive Date: 20071218
  Receipt Date: 20070221
  Transmission Date: 20080405
  Serious: Yes (Hospitalization, Other)
  Sender: FDA-Public Use
  Company Number: 2006132736

PATIENT
  Age: 56 Year
  Sex: Male
  Weight: 71.7 kg

DRUGS (1)
  1. BEXTRA [Suspect]
     Indication: INTERVERTEBRAL DISC PROTRUSION
     Dosage: (20 MG,1 D)
     Dates: start: 20031201

REACTIONS (8)
  - BACK PAIN [None]
  - DEPRESSION [None]
  - IMPAIRED WORK ABILITY [None]
  - INSOMNIA [None]
  - INTRACARDIAC THROMBUS [None]
  - LOSS OF LIBIDO [None]
  - MYOCARDIAL INFARCTION [None]
  - VISION BLURRED [None]
